FAERS Safety Report 5394897-9 (Version None)
Quarter: 2007Q3

REPORT INFORMATION
  Report Type: 
  Country: None (occurrence: None)
  Receive Date: 20070720
  Receipt Date: 20070706
  Transmission Date: 20080115
  Serious: Yes (Life-Threatening, Other)
  Sender: FDA-Public Use
  Company Number: 16984

PATIENT
  Age: 11 Month
  Sex: Male
  Weight: 10 kg

DRUGS (1)
  1. ATRACURIUM BESYLATE [Suspect]
     Indication: MUSCLE RELAXANT THERAPY
     Dosage: 0.5 MG/KG ONCE IA
     Route: 013
     Dates: start: 20061003, end: 20061003

REACTIONS (6)
  - ANAPHYLACTIC REACTION [None]
  - CARDIAC ARREST [None]
  - CONTUSION [None]
  - PROCEDURAL COMPLICATION [None]
  - SKIN DISCOLOURATION [None]
  - SKIN TEST POSITIVE [None]
